FAERS Safety Report 17576272 (Version 2)
Quarter: 2020Q1

REPORT INFORMATION
  Report Type: Spontaneous
  Country: ES (occurrence: ES)
  Receive Date: 20200324
  Receipt Date: 20200326
  Transmission Date: 20200409
  Serious: Yes (Other)
  Sender: FDA-Public Use
  Company Number: ES-TEVA-2020-ES-1207878

PATIENT
  Sex: Male

DRUGS (1)
  1. LEVOFLOXACINO TEVA 500 MG COMPRIMIDOS RECUBIERTOS CON PELICULA EFG, 7 [Suspect]
     Active Substance: LEVOFLOXACIN
     Indication: PNEUMONIA
     Dosage: 500 MILLIGRAM DAILY; 1 TABLET EVERY 24 HOURS FOR A WEEK
     Route: 048
     Dates: start: 20200309, end: 20200310

REACTIONS (6)
  - Confusional state [Recovering/Resolving]
  - Angioedema [Recovering/Resolving]
  - Muscular weakness [Recovering/Resolving]
  - Dizziness [Recovering/Resolving]
  - Asthenia [Recovering/Resolving]
  - Arthralgia [Recovering/Resolving]

NARRATIVE: CASE EVENT DATE: 20200309
